FAERS Safety Report 11748246 (Version 1)
Quarter: 2015Q4

REPORT INFORMATION
  Report Type: Spontaneous
  Country: US (occurrence: US)
  Receive Date: 20151117
  Receipt Date: 20151117
  Transmission Date: 20160304
  Serious: No
  Sender: FDA-Public Use
  Company Number: US-GLAXOSMITHKLINE-US2015GSK160079

PATIENT
  Sex: Female

DRUGS (1)
  1. FLOVENT [Suspect]
     Active Substance: FLUTICASONE PROPIONATE
     Indication: PRODUCT USED FOR UNKNOWN INDICATION
     Dosage: UNK, U

REACTIONS (10)
  - Chapped lips [Unknown]
  - Dry mouth [Unknown]
  - Cough [Unknown]
  - Eating disorder [Unknown]
  - Nausea [Unknown]
  - Malaise [Unknown]
  - Lip haemorrhage [Unknown]
  - Stomatitis [Unknown]
  - Diarrhoea [Unknown]
  - Lip dry [Unknown]
